FAERS Safety Report 7320554-5 (Version None)
Quarter: 2011Q1

REPORT INFORMATION
  Report Type: 
  Country: None (occurrence: None)
  Receive Date: 20110215
  Receipt Date: 20110201
  Transmission Date: 20110831
  Serious: Yes (Other)
  Sender: FDA-Public Use
  Company Number: 007854

PATIENT
  Sex: Female
  Weight: 65 kg

DRUGS (5)
  1. CALCARB WITH VITAMIN D [Concomitant]
  2. FOLIC ACID [Concomitant]
  3. PREDNISOLONE [Concomitant]
  4. METHOTREXATE [Concomitant]
  5. CERTOLIZUMAB PEGOL (CERTOLIZUMAB PEGOL) [Suspect]
     Indication: RHEUMATOID ARTHRITIS
     Dosage: (200 MG 1X/2 WEEKS SUBCUTANEOUS)
     Route: 058
     Dates: start: 20081215, end: 20090505

REACTIONS (2)
  - PRURITUS [None]
  - DERMATITIS ALLERGIC [None]
